FAERS Safety Report 7823714-X (Version None)
Quarter: 2011Q4

REPORT INFORMATION
  Report Type: 
  Country: None (occurrence: None)
  Receive Date: 20111014
  Receipt Date: 20111011
  Transmission Date: 20120403
  Serious: Yes (Hospitalization, Other)
  Sender: FDA-Public Use
  Company Number: 201111325

PATIENT
  Age: 14 Year
  Sex: Female

DRUGS (1)
  1. LIORESAL [Suspect]
     Indication: MUSCLE SPASTICITY
     Dosage: 398.2 MCG, DAILY, INTRATHECAL
     Route: 037

REACTIONS (5)
  - SKIN DISCOLOURATION [None]
  - PRURITUS [None]
  - MUSCLE SPASTICITY [None]
  - COLD SWEAT [None]
  - HYPERHIDROSIS [None]
